FAERS Safety Report 18958594 (Version 5)
Quarter: 2021Q2

REPORT INFORMATION
  Report Type: Report from Study
  Country: US (occurrence: US)
  Receive Date: 20210302
  Receipt Date: 20210616
  Transmission Date: 20210717
  Serious: No
  Sender: FDA-Public Use
  Company Number: NVSC2021US037892

PATIENT
  Sex: Female

DRUGS (2)
  1. KESIMPTA [Suspect]
     Active Substance: OFATUMUMAB
     Indication: PRODUCT USED FOR UNKNOWN INDICATION
     Dosage: 20 MG, QMO
     Route: 058
     Dates: start: 20210207
  2. KESIMPTA [Suspect]
     Active Substance: OFATUMUMAB
     Dosage: UNK
     Route: 065
     Dates: start: 20210214

REACTIONS (8)
  - Pain [Unknown]
  - Injection site bruising [Unknown]
  - Injection site haemorrhage [Unknown]
  - COVID-19 [Unknown]
  - Arthralgia [Unknown]
  - Chills [Unknown]
  - Upper-airway cough syndrome [Unknown]
  - Headache [Unknown]
